FAERS Safety Report 8191681-8 (Version None)
Quarter: 2012Q1

REPORT INFORMATION
  Report Type: 
  Country: None (occurrence: None)
  Receive Date: 20120307
  Receipt Date: 20110616
  Transmission Date: 20120608
  Serious: No
  Sender: FDA-Public Use
  Company Number: US-ASTRAZENECA-2011SE37072

PATIENT
  Age: 43 Year
  Sex: Male
  Weight: 104.3 kg

DRUGS (3)
  1. ZOMIG [Suspect]
     Indication: CLUSTER HEADACHE
     Route: 045
     Dates: start: 20050101
  2. ZONISAMIDE [Concomitant]
     Dates: start: 20110501
  3. TOPAMAX [Concomitant]
     Dates: start: 20110601

REACTIONS (3)
  - HEADACHE [None]
  - THERAPEUTIC RESPONSE UNEXPECTED [None]
  - OFF LABEL USE [None]
